FAERS Safety Report 4599051-6 (Version None)
Quarter: 2005Q1

REPORT INFORMATION
  Report Type: 
  Country: None (occurrence: None)
  Receive Date: 20050302
  Receipt Date: 20050217
  Transmission Date: 20050727
  Serious: Yes (Hospitalization, Disabling, Other)
  Sender: FDA-Public Use
  Company Number: 2005BL001041

PATIENT
  Age: 92 Year
  Sex: Female

DRUGS (1)
  1. LOTEMAX [Suspect]
     Indication: CATARACT OPERATION
     Dosage: 1 DROP; 4 TIMES A DAY; TOPICAL
     Route: 061
     Dates: start: 20050210, end: 20050215

REACTIONS (2)
  - ADVERSE EVENT [None]
  - ENDOPHTHALMITIS [None]
